FAERS Safety Report 7541055-5 (Version None)
Quarter: 2011Q2

REPORT INFORMATION
  Report Type: 
  Country: None (occurrence: None)
  Receive Date: 20110610
  Receipt Date: 20110530
  Transmission Date: 20111010
  Serious: Yes (Other)
  Sender: FDA-Public Use
  Company Number: GB-MYLANLABS-2011S1011349

PATIENT
  Age: 29 Year
  Sex: Female

DRUGS (12)
  1. CHLORPHENIRAMINE MALEATE [Concomitant]
     Indication: HYPERSENSITIVITY
     Route: 042
  2. CETIRIZINE HCL [Concomitant]
     Route: 048
  3. FLUCONAZOLE [Concomitant]
     Indication: HIV INFECTION
     Route: 065
  4. FAMCICLOVIR [Suspect]
     Indication: NECROTISING RETINITIS
     Route: 048
  5. DEXAMETHASONE [Concomitant]
     Indication: NECROTISING RETINITIS
     Route: 031
  6. STAVUDINE [Concomitant]
     Indication: HIV INFECTION
  7. ACYCLOVIR [Suspect]
     Indication: NECROTISING RETINITIS
     Route: 042
  8. EFAVIRENZ [Concomitant]
     Indication: HIV INFECTION
     Route: 065
  9. HYDROCORTISONE [Concomitant]
  10. LAMIVUDINE [Concomitant]
     Indication: HIV INFECTION
     Route: 065
  11. TENOFOVIR DISOPROXIL FUMARATE [Concomitant]
     Indication: HIV INFECTION
     Route: 065
  12. DAPSONE [Concomitant]
     Indication: HIV INFECTION
     Route: 065

REACTIONS (2)
  - RASH ERYTHEMATOUS [None]
  - ANGIOEDEMA [None]
